FAERS Safety Report 8454300-9 (Version None)
Quarter: 2012Q2

REPORT INFORMATION
  Report Type: 
  Country: None (occurrence: None)
  Receive Date: 20120620
  Receipt Date: 20120615
  Transmission Date: 20120825
  Serious: No
  Sender: FDA-Public Use
  Company Number: US-B.I. PHARMACEUTICALS,INC./RIDGEFIELD-2012-BP-13830BP

PATIENT
  Sex: Male

DRUGS (4)
  1. FORMOTEROL FUMARATE [Concomitant]
     Indication: EMPHYSEMA
     Dosage: 40 MCG
     Route: 055
  2. SPIRIVA [Suspect]
     Indication: EMPHYSEMA
     Dosage: 18 MCG
     Route: 055
  3. PROAIR HFA [Suspect]
     Indication: EMPHYSEMA
     Route: 055
  4. SPIRIVA [Suspect]
     Route: 048
     Dates: start: 20120615, end: 20120615

REACTIONS (2)
  - INCORRECT ROUTE OF DRUG ADMINISTRATION [None]
  - CONSTIPATION [None]
